FAERS Safety Report 13811881 (Version 2)
Quarter: 2017Q3

REPORT INFORMATION
  Report Type: Report from Study
  Country: US (occurrence: US)
  Receive Date: 20170728
  Receipt Date: 20170816
  Transmission Date: 20171127
  Serious: Yes (Other)
  Sender: FDA-Public Use
  Company Number: US-AMGEN-USASL2017094260

PATIENT
  Age: 72 Year
  Sex: Female

DRUGS (2)
  1. REPATHA [Suspect]
     Active Substance: EVOLOCUMAB
     Indication: HYPERCHOLESTEROLAEMIA
     Dosage: 140 MG, QMO
     Route: 065
  2. REPATHA [Suspect]
     Active Substance: EVOLOCUMAB
     Dosage: 140 MG, Q2WK
     Route: 065

REACTIONS (13)
  - Feeling abnormal [Unknown]
  - Bronchitis [Unknown]
  - Low density lipoprotein increased [Unknown]
  - Malaise [Unknown]
  - Viral pharyngitis [Unknown]
  - Fatigue [Unknown]
  - Urinary tract infection [Unknown]
  - Rash papular [Unknown]
  - Hypersensitivity vasculitis [Unknown]
  - Back pain [Unknown]
  - Drug intolerance [Unknown]
  - Gastritis [Unknown]
  - Off label use [Unknown]

NARRATIVE: CASE EVENT DATE: 201703
